FAERS Safety Report 6309439-0 (Version None)
Quarter: 2009Q3

REPORT INFORMATION
  Report Type: 
  Country: None (occurrence: None)
  Receive Date: 20090811
  Receipt Date: 20090731
  Transmission Date: 20100115
  Serious: Yes (Hospitalization)
  Sender: FDA-Public Use
  Company Number: FABR-1000929

PATIENT
  Age: 62 Year
  Sex: Male

DRUGS (9)
  1. FABRAZYME [Suspect]
     Indication: FABRY'S DISEASE
     Dosage: 1 MG/KG, INTRAVENOUS
     Route: 042
  2. SIMVASTATIN [Concomitant]
  3. ESKIM (OMEGA-3 TRIGYLCERIDES) [Concomitant]
  4. TRIMETON (CHLORPHENAMINE MALEATE) [Concomitant]
  5. BISOPROLOL FUMARATE [Concomitant]
  6. TICLID [Concomitant]
  7. ASPIRIN [Concomitant]
  8. LANSOPRAZOLE [Concomitant]
  9. KARVEZIDE (HYDROCHLOROTHIAZIDE, IRBESARTAN) [Concomitant]

REACTIONS (9)
  - AGITATION [None]
  - CONFUSIONAL STATE [None]
  - CONVULSION [None]
  - DYSPNOEA [None]
  - EXTRASYSTOLES [None]
  - HYPERTENSION [None]
  - NAUSEA [None]
  - TACHYCARDIA [None]
  - VOMITING [None]
